FAERS Safety Report 8947911 (Version 1)
Quarter: 2012Q4

REPORT INFORMATION
  Report Type: Spontaneous
  Country: US (occurrence: None)
  Receive Date: 20121203
  Receipt Date: 20121203
  Transmission Date: 20130627
  Serious: Yes (Hospitalization)
  Sender: FDA-Public Use
  Company Number: None

PATIENT
  Age: 55 Year
  Sex: Female
  Weight: 47.63 kg

DRUGS (2)
  1. PAROXETINE [Suspect]
     Indication: DEPRESSION
     Dosage: 10mg daily po
     Route: 048
  2. BUPROPION [Suspect]
     Dosage: 150mg twice daily po
     Route: 048

REACTIONS (2)
  - Supraventricular tachycardia [None]
  - Blood sodium decreased [None]
